FAERS Safety Report 24838317 (Version 1)
Quarter: 2025Q1

REPORT INFORMATION
  Report Type: Spontaneous
  Country: US (occurrence: None)
  Receive Date: 20250113
  Receipt Date: 20250113
  Transmission Date: 20250409
  Serious: Yes (Other)
  Sender: FDA-CTU
  Company Number: None

PATIENT
  Age: 78 Year
  Sex: Female
  Weight: 69.75 kg

DRUGS (8)
  1. REPATHA [Suspect]
     Active Substance: EVOLOCUMAB
     Indication: Blood cholesterol increased
     Route: 058
     Dates: start: 20241007, end: 20250106
  2. LINZESS [Suspect]
     Active Substance: LINACLOTIDE
  3. FLECAINIDE [Concomitant]
     Active Substance: FLECAINIDE
  4. LOSARTAN [Concomitant]
     Active Substance: LOSARTAN
  5. ZOLPIDEM [Concomitant]
     Active Substance: ZOLPIDEM TARTRATE
  6. METOPROLOL [Concomitant]
     Active Substance: METOPROLOL
  7. Vita b12 [Concomitant]
  8. MELATONIN [Concomitant]
     Active Substance: MELATONIN

REACTIONS (5)
  - Abdominal pain [None]
  - Gastrointestinal pain [None]
  - Gastrointestinal disorder [None]
  - Swelling [None]
  - Gastrointestinal inflammation [None]

NARRATIVE: CASE EVENT DATE: 20241001
